FAERS Safety Report 15157795 (Version 3)
Quarter: 2019Q1

REPORT INFORMATION
  Report Type: Spontaneous
  Country: US (occurrence: US)
  Receive Date: 20180718
  Receipt Date: 20190212
  Transmission Date: 20190417
  Serious: No
  Sender: FDA-Public Use
  Company Number: US-PFIZER INC-2018289231

PATIENT
  Age: 84 Year
  Sex: Female

DRUGS (1)
  1. XELJANZ [Suspect]
     Active Substance: TOFACITINIB CITRATE
     Indication: RHEUMATOID ARTHRITIS
     Dosage: 5 MG, TWICE DAILY (60/BTL)
     Route: 048
     Dates: start: 20180411

REACTIONS (3)
  - Pain [Unknown]
  - Musculoskeletal pain [Unknown]
  - Arthralgia [Unknown]
